FAERS Safety Report 11996291 (Version 1)
Quarter: 2016Q1

REPORT INFORMATION
  Report Type: Report from Study
  Country: US (occurrence: US)
  Receive Date: 20160203
  Receipt Date: 20160203
  Transmission Date: 20160526
  Serious: Yes (Death, Hospitalization)
  Sender: FDA-Public Use
  Company Number: US-JACOBUS PHARMACEUTICAL COMPANY, INC.-1047275

PATIENT
  Age: 66 Year
  Sex: Male
  Weight: 112.9 kg

DRUGS (27)
  1. INOTUZUMAB OZOGAMICIN [Suspect]
     Active Substance: INOTUZUMAB OZOGAMICIN
     Route: 042
     Dates: start: 20140528, end: 20140714
  2. SODIUM CHLORIDE. [Concomitant]
     Active Substance: SODIUM CHLORIDE
     Route: 042
  3. VANCOMYCIN [Concomitant]
     Active Substance: VANCOMYCIN
  4. MAALOX ANTACID [Concomitant]
     Active Substance: ALUMINUM HYDROXIDE\DIMETHICONE\MAGNESIUM HYDROXIDE
     Dates: start: 20141016, end: 20141016
  5. PHYTONADIONE. [Concomitant]
     Active Substance: PHYTONADIONE
     Route: 048
     Dates: start: 20141019, end: 20141019
  6. SUCRETS [Concomitant]
     Active Substance: DYCLONINE HYDROCHLORIDE\HEXYLRESORCINOL\MENTHOL\PECTIN
     Route: 048
     Dates: start: 20141017, end: 20141017
  7. COLACE [Concomitant]
     Active Substance: DOCUSATE SODIUM
     Route: 048
  8. ZOFRAN [Concomitant]
     Active Substance: ONDANSETRON HYDROCHLORIDE
     Route: 048
  9. VALTREX [Concomitant]
     Active Substance: VALACYCLOVIR HYDROCHLORIDE
     Route: 048
     Dates: start: 20141019, end: 20141019
  10. SENOKOT [Concomitant]
     Active Substance: SENNOSIDES
  11. FOLIC ACID. [Concomitant]
     Active Substance: FOLIC ACID
     Route: 048
     Dates: start: 20141019, end: 20141019
  12. CORTEF [Concomitant]
     Active Substance: HYDROCORTISONE
     Route: 048
     Dates: start: 20141019, end: 20141019
  13. LANTUS [Concomitant]
     Active Substance: INSULIN GLARGINE
     Route: 058
     Dates: start: 20141018
  14. INV DEFIBROTIDE (GENTIUM 2006-05) [Concomitant]
     Route: 042
  15. TOPROL XL [Concomitant]
     Active Substance: METOPROLOL SUCCINATE
     Route: 048
     Dates: start: 20141019, end: 20141019
  16. ALDACTONE [Concomitant]
     Active Substance: SPIRONOLACTONE
     Route: 048
     Dates: start: 20141019, end: 20141019
  17. PROGRAF [Concomitant]
     Active Substance: TACROLIMUS\TACROLIMUS ANHYDROUS
     Route: 048
     Dates: start: 20141019, end: 20141019
  18. DAPSONE. [Suspect]
     Active Substance: DAPSONE
     Indication: INFECTION PROPHYLAXIS
     Route: 048
     Dates: start: 20140916, end: 20141023
  19. MIRALAX [Concomitant]
     Active Substance: POLYETHYLENE GLYCOL 3350
  20. MAGNESIUM OXIDE. [Concomitant]
     Active Substance: MAGNESIUM OXIDE
     Route: 048
     Dates: start: 20141019, end: 20141019
  21. VITAMIN B-1 (THIAMINE) [Concomitant]
     Route: 048
     Dates: start: 20141019, end: 20141019
  22. ACTIGALL [Concomitant]
     Active Substance: URSODIOL
     Route: 048
     Dates: start: 20141019, end: 20141019
  23. LASIX [Concomitant]
     Active Substance: FUROSEMIDE
     Route: 048
     Dates: start: 20141019, end: 20141019
  24. HUMALOG [Concomitant]
     Active Substance: INSULIN LISPRO
     Route: 058
     Dates: start: 20141019, end: 20141019
  25. ENTOCORT EC [Concomitant]
     Active Substance: BUDESONIDE
     Route: 048
     Dates: start: 20141019, end: 20141019
  26. HUMALOG [Concomitant]
     Active Substance: INSULIN LISPRO
     Route: 058
     Dates: start: 20141018, end: 20141018
  27. PRILOSEC [Concomitant]
     Active Substance: OMEPRAZOLE MAGNESIUM
     Route: 048
     Dates: start: 20141019, end: 20141019

REACTIONS (1)
  - Venoocclusive liver disease [Fatal]

NARRATIVE: CASE EVENT DATE: 20141010
